FAERS Safety Report 20224471 (Version 1)
Quarter: 2021Q4

REPORT INFORMATION
  Report Type: Spontaneous
  Country: US (occurrence: US)
  Receive Date: 20211223
  Receipt Date: 20211223
  Transmission Date: 20220303
  Serious: No
  Sender: FDA-Public Use
  Company Number: US-PHARMING-PHAUS2021000663

PATIENT

DRUGS (1)
  1. RUCONEST [Suspect]
     Active Substance: HUMAN C1-ESTERASE INHIBITOR
     Indication: Angioedema
     Dosage: 4200 IU, EVERY THREE DAYS
     Route: 042
     Dates: start: 20210223

REACTIONS (5)
  - Pharyngeal swelling [Recovered/Resolved]
  - Fatigue [Unknown]
  - Weight fluctuation [Unknown]
  - Intentional product use issue [Unknown]
  - Product use in unapproved indication [Unknown]

NARRATIVE: CASE EVENT DATE: 20211201
